FAERS Safety Report 9513431 (Version 1)
Quarter: 2013Q3

REPORT INFORMATION
  Report Type: Spontaneous
  Country: US (occurrence: US)
  Receive Date: 20130910
  Receipt Date: 20130910
  Transmission Date: 20140515
  Serious: No
  Sender: FDA-Public Use
  Company Number: US-TARO-2012P1061137

PATIENT
  Age: 87 Year
  Sex: Female
  Weight: 56.7 kg

DRUGS (10)
  1. WARFARIN SODIUM TABLETS USP 5MG [Suspect]
     Route: 048
     Dates: start: 201207
  2. WARFARIN SODIUM TABLETS USP 5MG [Suspect]
     Indication: PULMONARY OEDEMA
     Route: 048
     Dates: start: 201207
  3. WARFARIN SODIUM TABLETS USP 2MG [Suspect]
     Route: 048
     Dates: start: 201207
  4. WARFARIN SODIUM TABLETS USP 2MG [Suspect]
     Indication: PULMONARY OEDEMA
     Route: 048
     Dates: start: 201207
  5. METOPROLOL [Concomitant]
  6. NIFEDIPINE [Concomitant]
  7. LISINOPRIL [Concomitant]
  8. PANTOPRAZOLE [Concomitant]
  9. MULTIVITAMIN [Concomitant]
  10. CALCIUM [Concomitant]

REACTIONS (1)
  - Alopecia [Not Recovered/Not Resolved]
